FAERS Safety Report 4402016-8 (Version None)
Quarter: 2004Q3

REPORT INFORMATION
  Report Type: 
  Country: None (occurrence: None)
  Receive Date: 20040714
  Receipt Date: 20040706
  Transmission Date: 20050211
  Serious: Yes (Hospitalization)
  Sender: FDA-Public Use
  Company Number: US-JNJFOC-20040701617

PATIENT
  Age: 50 Year
  Sex: Female

DRUGS (3)
  1. DURAGESIC [Suspect]
     Indication: PAIN
     Dosage: SEE IMAGE  TRANSDERMAL
     Route: 062
     Dates: start: 20040501, end: 20040601
  2. DURAGESIC [Suspect]
     Indication: PAIN
     Dosage: SEE IMAGE  TRANSDERMAL
     Route: 062
     Dates: start: 20040601
  3. ROXICODONE (TABLETS) OXYCODONE HYDROCHLORIDE [Concomitant]

REACTIONS (1)
  - INADEQUATE ANALGESIA [None]
